FAERS Safety Report 7132087-X (Version None)
Quarter: 2010Q4

REPORT INFORMATION
  Report Type: 
  Country: None (occurrence: None)
  Receive Date: 20101202
  Receipt Date: 20101125
  Transmission Date: 20110411
  Serious: Yes (Other)
  Sender: FDA-Public Use
  Company Number: PHHY2010AU51272

PATIENT
  Sex: Female

DRUGS (1)
  1. ACLASTA/ZOLEDRONATE T29581+A++OS [Suspect]
     Indication: OSTEOPOROSIS
     Dosage: 5 MG, UNK
     Route: 042
     Dates: start: 20090217, end: 20090217

REACTIONS (3)
  - BLISTER [None]
  - HEADACHE [None]
  - OEDEMA PERIPHERAL [None]
